FAERS Safety Report 24302877 (Version 1)
Quarter: 2024Q3

REPORT INFORMATION
  Report Type: Spontaneous
  Country: JP (occurrence: JP)
  Receive Date: 20240910
  Receipt Date: 20240910
  Transmission Date: 20241017
  Serious: Yes (Other)
  Sender: RANBAXY
  Company Number: JP-SUN PHARMACEUTICAL INDUSTRIES LTD-2024RR-466625

PATIENT
  Age: 23 Year
  Sex: Female

DRUGS (1)
  1. VALSARTAN [Suspect]
     Active Substance: VALSARTAN
     Indication: Product used for unknown indication
     Dosage: 22 VALSARTAN 40 MG TABLETS (880 MG IN TOTAL)
     Route: 048

REACTIONS (4)
  - Exposure during pregnancy [Unknown]
  - Overdose [Unknown]
  - Spontaneous rupture of membranes [Unknown]
  - Caesarean section [Unknown]
